FAERS Safety Report 7937090-5 (Version None)
Quarter: 2011Q4

REPORT INFORMATION
  Report Type: 
  Country: None (occurrence: None)
  Receive Date: 20111123
  Receipt Date: 20111118
  Transmission Date: 20120403
  Serious: Yes (Hospitalization, Other)
  Sender: FDA-Public Use
  Company Number: US-PURDUE-USA-2011-0077432

PATIENT
  Age: 23 Year
  Sex: Male
  Weight: 78.6 kg

DRUGS (30)
  1. KYTRIL [Suspect]
     Indication: VOMITING
  2. MORPHINE SULFATE [Concomitant]
     Indication: PAIN
     Dosage: UNK
     Dates: start: 20111015
  3. FAMVIR                             /01226201/ [Concomitant]
     Indication: ANOGENITAL WARTS
     Dosage: UNK
     Dates: start: 20110331
  4. HYDROCORTISONE W/LIDOCAINE [Concomitant]
     Indication: PROCTALGIA
     Dosage: UNK
     Route: 061
     Dates: start: 20110919
  5. HEPARIN [Concomitant]
     Indication: THROMBOSIS PROPHYLAXIS
     Dosage: UNK
     Dates: start: 20110331, end: 20110916
  6. CELEXA [Suspect]
     Indication: DEPRESSION
     Dosage: UNK
     Dates: start: 20110331
  7. SCOPOLAMINE [Suspect]
     Indication: PAIN
  8. DEMEROL [Suspect]
     Indication: PAIN
     Dosage: UNK
     Dates: start: 20111016
  9. DEMEROL [Suspect]
     Indication: CHILLS
  10. CIPROFLOXACIN [Concomitant]
     Indication: BACTERIAL INFECTION
     Dosage: UNK
     Dates: start: 20110914, end: 20110916
  11. FLUCONAZOLE [Concomitant]
     Indication: BACTERIAL INFECTION
     Dosage: UNK
     Dates: start: 20110331, end: 20110916
  12. DILAUDID [Suspect]
     Indication: PAIN
     Dosage: 2 MG, Q3H
     Dates: start: 20110628, end: 20111016
  13. NEUPOGEN [Concomitant]
     Indication: NEUTROPENIA
     Dosage: UNK
     Dates: start: 20110614, end: 20110914
  14. LIDOCAINE [Concomitant]
     Indication: PROCTALGIA
     Dosage: UNK
     Dates: start: 20110919, end: 20110919
  15. POLYETHYLENE GLYCOL [Concomitant]
     Indication: CONSTIPATION
     Dosage: UNK
     Dates: start: 20110722, end: 20110919
  16. NYSTATIN [Concomitant]
     Indication: MUCOSAL INFLAMMATION
     Dosage: UNK
     Dates: start: 20110821, end: 20110919
  17. KYTRIL [Suspect]
     Indication: NAUSEA
     Dosage: UNK
     Dates: start: 20111006
  18. CONCERTA [Concomitant]
     Indication: ATTENTION DEFICIT/HYPERACTIVITY DISORDER
  19. OMEPRAZOLE [Concomitant]
     Indication: PROPHYLAXIS
     Dosage: UNK
     Dates: start: 20110413, end: 20111017
  20. MARINOL                            /00897601/ [Suspect]
     Indication: NAUSEA
     Dosage: 5 MG, TID
     Route: 048
     Dates: start: 20110404, end: 20111016
  21. FENTANYL [Suspect]
     Indication: PAIN
     Dosage: 100 MCG, Q72H
     Dates: start: 20110919, end: 20111017
  22. ATIVAN [Suspect]
     Indication: NAUSEA
     Dosage: 1 MG, Q6H
     Route: 048
     Dates: start: 20110311
  23. ATIVAN [Suspect]
     Indication: ANXIETY
  24. STUDY DRUG [Suspect]
     Indication: LYMPHOCYTIC LEUKAEMIA
     Dosage: UNK, SEE TEXT
  25. MEPRON                             /01181501/ [Concomitant]
     Indication: BACTERIAL INFECTION
     Dosage: UNK
     Dates: start: 20110722
  26. CHLORHEXIDINE GLUCONATE [Concomitant]
     Indication: GINGIVITIS
     Dosage: UNK
     Dates: start: 20110821, end: 20110919
  27. COLACE CAPSULES [Concomitant]
     Indication: CONSTIPATION
     Dosage: UNK
     Dates: start: 20110613
  28. SCOPOLAMINE [Suspect]
     Indication: NAUSEA
     Dosage: 1.5 MG, Q72H
     Dates: start: 20111006, end: 20111014
  29. SENNA-MINT WAF [Concomitant]
     Indication: CONSTIPATION
  30. LORATADINE [Concomitant]
     Indication: SEASONAL ALLERGY
     Dosage: UNK
     Dates: start: 20110331

REACTIONS (12)
  - FUNGAL RHINITIS [None]
  - TOXICITY TO VARIOUS AGENTS [None]
  - PNEUMONIA FUNGAL [None]
  - ABDOMINAL PAIN [None]
  - DYSKINESIA [None]
  - CHEST PAIN [None]
  - MUSCLE SPASMS [None]
  - FEBRILE NEUTROPENIA [None]
  - SYSTEMIC MYCOSIS [None]
  - SINUSITIS FUNGAL [None]
  - LEUKAEMIA RECURRENT [None]
  - CLOSTRIDIUM DIFFICILE COLITIS [None]
